FAERS Safety Report 4893600-6 (Version None)
Quarter: 2005Q4

REPORT INFORMATION
  Report Type: 
  Country: None (occurrence: None)
  Receive Date: 20051223
  Receipt Date: 20051115
  Transmission Date: 20060501
  Serious: No
  Sender: FDA-Public Use
  Company Number: 2005PV004547

PATIENT
  Age: 54 Year
  Sex: Male
  Weight: 136.0791 kg

DRUGS (3)
  1. SYMLIN [Suspect]
     Indication: DIABETES MELLITUS NON-INSULIN-DEPENDENT
     Dosage: 120 MCG;SC
     Route: 058
     Dates: start: 20050101
  2. HUMALOG [Concomitant]
  3. HUMULIN U [Concomitant]

REACTIONS (3)
  - DIARRHOEA [None]
  - MEDICATION ERROR [None]
  - NAUSEA [None]
